FAERS Safety Report 5241203-6 (Version None)
Quarter: 2007Q1

REPORT INFORMATION
  Report Type: 
  Country: None (occurrence: None)
  Receive Date: 20070212
  Receipt Date: 20070212
  Transmission Date: 20070707
  Serious: No
  Sender: FDA-Public Use
  Company Number: None

PATIENT
  Age: 70 Year
  Sex: Female
  Weight: 72.5755 kg

DRUGS (2)
  1. RAZADYNE [Suspect]
  2. ROZEREM [Suspect]

REACTIONS (2)
  - INTERCEPTED DRUG DISPENSING ERROR [None]
  - MEDICATION ERROR [None]
